FAERS Safety Report 20743757 (Version 2)
Quarter: 2022Q2

REPORT INFORMATION
  Report Type: Spontaneous
  Country: US (occurrence: None)
  Receive Date: 20220425
  Receipt Date: 20220617
  Transmission Date: 20220721
  Serious: Yes (Other)
  Sender: FDA-Public Use
  Company Number: US-ROCHE-3081715

PATIENT
  Sex: Male
  Weight: 72.2 kg

DRUGS (8)
  1. VALCYTE [Suspect]
     Active Substance: VALGANCICLOVIR HYDROCHLORIDE
     Indication: Renal transplant
     Dosage: 450 MG TABLETS IN THE MORNING
     Route: 048
     Dates: start: 20211106
  2. CELLCEPT [Suspect]
     Active Substance: MYCOPHENOLATE MOFETIL
     Indication: Renal transplant
     Route: 048
     Dates: start: 202111
  3. PROGRAF [Concomitant]
     Active Substance: TACROLIMUS
     Indication: Renal transplant
     Route: 048
     Dates: start: 202111
  4. PREDNISONE [Concomitant]
     Active Substance: PREDNISONE
     Indication: Renal transplant
     Route: 048
     Dates: start: 202111
  5. DECASONE [Concomitant]
     Indication: Renal transplant
     Route: 048
     Dates: start: 202111
  6. PROTONIX [Concomitant]
     Active Substance: PANTOPRAZOLE SODIUM
     Indication: Renal transplant
     Route: 048
     Dates: start: 202111
  7. SODIUM BICARBONATE [Concomitant]
     Active Substance: SODIUM BICARBONATE
     Indication: Renal transplant
     Route: 048
     Dates: start: 202111
  8. MAGNESIUM [Concomitant]
     Active Substance: MAGNESIUM
     Indication: Renal transplant
     Route: 048
     Dates: start: 202111

REACTIONS (4)
  - Umbilical hernia [Recovering/Resolving]
  - Off label use [Unknown]
  - Weight decreased [Recovered/Resolved]
  - Decreased appetite [Recovered/Resolved]
